FAERS Safety Report 6263920-1 (Version None)
Quarter: 2009Q3

REPORT INFORMATION
  Report Type: 
  Country: None (occurrence: None)
  Receive Date: 20090707
  Receipt Date: 20090707
  Transmission Date: 20100115
  Serious: Yes (Other)
  Sender: FDA-Public Use
  Company Number: None

PATIENT
  Age: 35 Year
  Sex: Female
  Weight: 92.9874 kg

DRUGS (2)
  1. ZICAM COLD REMEDY NASAL GEL ZINCUM GLUCONICUM 2X ZICAM LLC [Suspect]
     Indication: BRONCHITIS
     Dosage: ONE DOSE IN EACH NOSTRIL 1-3 TIMES A DAY NASAL
     Route: 045
     Dates: start: 20090410, end: 20090501
  2. ZICAM COLD REMEDY NASAL GEL ZINCUM GLUCONICUM 2X ZICAM LLC [Suspect]
     Indication: NASOPHARYNGITIS
     Dosage: ONE DOSE IN EACH NOSTRIL 1-3 TIMES A DAY NASAL
     Route: 045
     Dates: start: 20090410, end: 20090501

REACTIONS (4)
  - AGEUSIA [None]
  - ANOSMIA [None]
  - HYPOGEUSIA [None]
  - HYPOSMIA [None]
